FAERS Safety Report 5146797-7 (Version None)
Quarter: 2006Q4

REPORT INFORMATION
  Report Type: 
  Country: None (occurrence: None)
  Receive Date: 20061102
  Receipt Date: 20061027
  Transmission Date: 20070319
  Serious: Yes (Death, Hospitalization)
  Sender: FDA-Public Use
  Company Number: 2006PV024056

PATIENT
  Age: 81 Year
  Sex: Male
  Weight: 107.5025 kg

DRUGS (16)
  1. BYETTA [Suspect]
     Indication: DIABETES MELLITUS NON-INSULIN-DEPENDENT
     Dosage: 5 MCG; BID; SC
     Route: 058
     Dates: start: 20060217, end: 20060518
  2. INSULIN [Concomitant]
  3. LANTUS [Concomitant]
  4. ALTACE [Concomitant]
  5. AMIODARONE HCL [Concomitant]
  6. ANDROGEL [Concomitant]
  7. COUMADIN [Concomitant]
  8. FLOMAX [Concomitant]
  9. LASIX [Concomitant]
  10. ISOSORBIDE [Concomitant]
  11. LIPITOR [Concomitant]
  12. NEURONTIN [Concomitant]
  13. NORCO 5MG/325MG [Concomitant]
  14. PROBENECID [Concomitant]
  15. SYNTHROID [Concomitant]
  16. AMARYL [Concomitant]

REACTIONS (3)
  - BLOOD GLUCOSE DECREASED [None]
  - CONDITION AGGRAVATED [None]
  - PERIPHERAL ARTERIAL OCCLUSIVE DISEASE [None]
